FAERS Safety Report 7565573-9 (Version None)
Quarter: 2011Q2

REPORT INFORMATION
  Report Type: 
  Country: None (occurrence: None)
  Receive Date: 20110615
  Receipt Date: 20110615
  Transmission Date: 20111010
  Serious: Yes (Hospitalization)
  Sender: FDA-Public Use
  Company Number: AUR-APL-2011-00124

PATIENT
  Age: 91 Year
  Sex: Female
  Weight: 63 kg

DRUGS (2)
  1. MIRTAZAPINE [Suspect]
     Indication: DEPRESSION
     Dosage: 15MG - ORAL
     Route: 048
     Dates: start: 20101028
  2. MARCUMAR [Concomitant]

REACTIONS (3)
  - HYPERKINESIA [None]
  - BALLISMUS [None]
  - AKATHISIA [None]
